FAERS Safety Report 16264029 (Version 1)
Quarter: 2019Q2

REPORT INFORMATION
  Report Type: Report from Study
  Country: US (occurrence: US)
  Receive Date: 20190502
  Receipt Date: 20190502
  Transmission Date: 20190711
  Serious: Yes (Other)
  Sender: FDA-Public Use
  Company Number: US-ROCHE-2308562

PATIENT
  Age: 64 Year
  Sex: Female
  Weight: 86.1 kg

DRUGS (4)
  1. LEUCOVORIN CALCIUM. [Suspect]
     Active Substance: LEUCOVORIN CALCIUM
     Indication: ADENOCARCINOMA OF COLON
     Dosage: MOST RECENT DOSE 03/OCT/2018
     Route: 042
     Dates: start: 20180423
  2. 5-FLUOROURACIL [FLUOROURACIL] [Suspect]
     Active Substance: FLUOROURACIL
     Indication: ADENOCARCINOMA OF COLON
     Dosage: MOST RECENT DOSE 05/OCT/2018
     Route: 042
     Dates: start: 20180423
  3. OXALIPLATIN. [Suspect]
     Active Substance: OXALIPLATIN
     Indication: ADENOCARCINOMA OF COLON
     Dosage: MOST RECENT DOSE 03/OCT/2018
     Route: 042
     Dates: start: 20180423
  4. ATEZOLIZUMAB. [Suspect]
     Active Substance: ATEZOLIZUMAB
     Indication: ADENOCARCINOMA OF COLON
     Dosage: MOST RECENT DOSE 11/SEP/2018
     Route: 041
     Dates: start: 20180423

REACTIONS (2)
  - Embolism [Not Recovered/Not Resolved]
  - Urinary tract infection [Not Recovered/Not Resolved]

NARRATIVE: CASE EVENT DATE: 20181007
